FAERS Safety Report 20840986 (Version 1)
Quarter: 2022Q2

REPORT INFORMATION
  Report Type: Spontaneous
  Country: US (occurrence: US)
  Receive Date: 20220517
  Receipt Date: 20220517
  Transmission Date: 20220721
  Serious: No
  Sender: FDA-Public Use
  Company Number: US-PFIZER INC-202101664420

PATIENT
  Sex: Female

DRUGS (2)
  1. LEVOXYL [Suspect]
     Active Substance: LEVOTHYROXINE SODIUM
     Dosage: UNK
  2. PROMETHAZINE HYDROCHLORIDE [Concomitant]
     Active Substance: PROMETHAZINE HYDROCHLORIDE

REACTIONS (7)
  - Insomnia [Unknown]
  - Blood thyroid stimulating hormone decreased [Recovered/Resolved]
  - Thyroxine increased [Unknown]
  - Crystal urine [Unknown]
  - Blood pressure decreased [Unknown]
  - Heart rate increased [Unknown]
  - Sinus arrhythmia [Unknown]
